FAERS Safety Report 22307810 (Version 5)
Quarter: 2024Q2

REPORT INFORMATION
  Report Type: Other
  Country: CA (occurrence: None)
  Receive Date: 20230511
  Receipt Date: 20240516
  Transmission Date: 20240716
  Serious: No
  Sender: FDA-Public Use
  Company Number: CA-ROCHE-3347920

PATIENT
  Sex: Female

DRUGS (1)
  1. OCREVUS [Suspect]
     Active Substance: OCRELIZUMAB
     Indication: Relapsing-remitting multiple sclerosis
     Dosage: 300 MG AT DAY 0 AND 14, THEN 600 MG EVERY 6 MONTH
     Route: 042
     Dates: start: 20230502

REACTIONS (8)
  - Oral herpes [Recovered/Resolved]
  - Memory impairment [Unknown]
  - Abdominal pain upper [Unknown]
  - Influenza like illness [Unknown]
  - Asthenia [Unknown]
  - Flatulence [Unknown]
  - Dizziness [Unknown]
  - Fatigue [Unknown]
